FAERS Safety Report 7283533-2 (Version None)
Quarter: 2011Q1

REPORT INFORMATION
  Report Type: 
  Country: None (occurrence: None)
  Receive Date: 20110209
  Receipt Date: 20110202
  Transmission Date: 20110831
  Serious: Yes (Hospitalization, Other)
  Sender: FDA-Public Use
  Company Number: US-ABBOTT-11P-163-0702482-00

PATIENT
  Sex: Female
  Weight: 117.13 kg

DRUGS (15)
  1. HUMIRA [Suspect]
     Route: 058
     Dates: start: 20110125
  2. HUMIRA [Suspect]
     Route: 058
  3. FOLIC ACID [Concomitant]
     Indication: PRODUCT USED FOR UNKNOWN INDICATION
     Route: 048
  4. LOVAZA [Concomitant]
     Indication: PRODUCT USED FOR UNKNOWN INDICATION
     Route: 048
  5. TRICOR [Concomitant]
     Indication: BLOOD CHOLESTEROL INCREASED
     Route: 048
  6. LEVOTHYROXINE SODIUM [Concomitant]
     Indication: HYPOTHYROIDISM
     Route: 048
     Dates: start: 20020101
  7. LANTUS [Concomitant]
     Indication: DIABETES MELLITUS
     Dosage: AT HOUR OF SLEEP
     Route: 050
  8. PRAVASTATIN SODIUM [Concomitant]
     Indication: BLOOD CHOLESTEROL INCREASED
     Route: 048
  9. HUMIRA [Suspect]
     Indication: RHEUMATOID ARTHRITIS
     Dosage: LOADING DOSE
     Route: 058
     Dates: start: 20110115, end: 20110115
  10. ZOLPIDEM [Concomitant]
     Indication: SLEEP DISORDER THERAPY
  11. NOVOLOG [Concomitant]
     Indication: DIABETES MELLITUS
     Dosage: SLIDING SCALE
     Route: 058
  12. HUMIRA [Suspect]
     Indication: RHEUMATOID ARTHRITIS
     Route: 058
  13. METOPROLOL TARTRATE [Concomitant]
     Indication: HYPERTENSION
     Route: 048
  14. SPIRONOLACTONE [Concomitant]
     Indication: SWELLING
     Dosage: DAILY OR PRN
     Route: 048
     Dates: start: 20100701
  15. FUROSEMIDE [Concomitant]
     Indication: SWELLING
     Route: 048
     Dates: start: 20100701

REACTIONS (12)
  - ARTHRITIS [None]
  - HEPATIC ENZYME INCREASED [None]
  - MYOCARDIAL INFARCTION [None]
  - COLLAPSE OF LUNG [None]
  - RHEUMATOID ARTHRITIS [None]
  - ANEURYSM [None]
  - WOUND INFECTION STAPHYLOCOCCAL [None]
  - ARTERIAL OCCLUSIVE DISEASE [None]
  - JOINT EFFUSION [None]
  - GALLBLADDER DISORDER [None]
  - DYSPNOEA [None]
  - CONGENITAL AORTIC VALVE INCOMPETENCE [None]
